FAERS Safety Report 16403074 (Version 1)
Quarter: 2019Q2

REPORT INFORMATION
  Report Type: Spontaneous
  Country: US (occurrence: US)
  Receive Date: 20190607
  Receipt Date: 20190607
  Transmission Date: 20190711
  Serious: No
  Sender: FDA-Public Use
  Company Number: US-TEVA-2019-US-1052690

PATIENT

DRUGS (1)
  1. TAMOXIFEN CITRATE. [Suspect]
     Active Substance: TAMOXIFEN CITRATE
     Dosage: POTENCY: 20 MG?PACKAGED: BOTTLE 30

REACTIONS (3)
  - Back pain [Unknown]
  - Myalgia [Unknown]
  - Fatigue [Unknown]
